FAERS Safety Report 9334701 (Version 2)
Quarter: 2013Q4

REPORT INFORMATION
  Report Type: Spontaneous
  Country: US (occurrence: US)
  Receive Date: 20130606
  Receipt Date: 20131008
  Transmission Date: 20140711
  Serious: No
  Sender: FDA-Public Use
  Company Number: US-AMGEN-USASP2013025575

PATIENT
  Age: 67 Year
  Sex: Female
  Weight: 60.32 kg

DRUGS (4)
  1. PROLIA [Suspect]
     Indication: OSTEOPOROSIS POSTMENOPAUSAL
     Dosage: UNK UNK, Q6MO
     Route: 058
     Dates: start: 20120703
  2. ATENOLOL [Concomitant]
  3. MULTIVITAMIN                       /00097801/ [Concomitant]
  4. CALCIUM [Concomitant]

REACTIONS (3)
  - Arthritis [Unknown]
  - Intervertebral disc degeneration [Not Recovered/Not Resolved]
  - Back pain [Not Recovered/Not Resolved]
